FAERS Safety Report 7373701-3 (Version None)
Quarter: 2011Q1

REPORT INFORMATION
  Report Type: 
  Country: None (occurrence: None)
  Receive Date: 20110325
  Receipt Date: 20110311
  Transmission Date: 20110831
  Serious: Yes (Hospitalization)
  Sender: FDA-Public Use
  Company Number: PHHY2010JP25669

PATIENT
  Age: 24 Year
  Sex: Male
  Weight: 39 kg

DRUGS (6)
  1. CLOBAZAM [Concomitant]
     Indication: EPILEPSY
     Dosage: UNK, UNK
     Route: 048
  2. VALPROATE SODIUM [Concomitant]
     Indication: EPILEPSY
     Dosage: UNK, UNK
     Route: 048
  3. TEGRETOL [Suspect]
     Indication: EPILEPSY
     Dosage: 400 MG, UNK
     Route: 048
  4. TEGRETOL [Suspect]
     Dosage: 500 MG, UNK
     Route: 048
  5. CLONAZEPAM [Concomitant]
  6. ZONISAMIDE [Concomitant]

REACTIONS (13)
  - DEHYDRATION [None]
  - MALAISE [None]
  - HYPONATRAEMIA [None]
  - ALTERED STATE OF CONSCIOUSNESS [None]
  - SECONDARY SEXUAL CHARACTERISTICS ABSENCE [None]
  - ANTICONVULSANT DRUG LEVEL INCREASED [None]
  - DECREASED APPETITE [None]
  - PYREXIA [None]
  - OTITIS MEDIA [None]
  - HYPOGONADISM [None]
  - INAPPROPRIATE ANTIDIURETIC HORMONE SECRETION [None]
  - VOMITING [None]
  - MIDDLE EAR EFFUSION [None]
